FAERS Safety Report 4466180-7 (Version None)
Quarter: 2004Q3

REPORT INFORMATION
  Report Type: 
  Country: None (occurrence: None)
  Receive Date: 20040928
  Receipt Date: 20040928
  Transmission Date: 20050211
  Serious: Yes (Hospitalization)
  Sender: FDA-Public Use
  Company Number: None

PATIENT
  Age: 69 Year
  Sex: Male
  Weight: 88.5 kg

DRUGS (9)
  1. INTEGRILIN [Suspect]
     Indication: ANTIPLATELET THERAPY
     Dosage: (1.9 ML BOLUSES) 14.0ML/HR IV
     Route: 042
     Dates: start: 20040921, end: 20040922
  2. HEPARIN [Suspect]
     Indication: ANTICOAGULANT THERAPY
     Dosage: 4.430-UNIT BOLUS
     Dates: start: 20040921
  3. MIDAZOLAM HCL [Concomitant]
  4. FENTANYL [Concomitant]
  5. NITROGLYCERIN [Concomitant]
  6. CEFTAZIDIME [Concomitant]
  7. ASPIRIN [Concomitant]
  8. CLOPIDOGREL [Concomitant]
  9. PEPCID [Concomitant]

REACTIONS (2)
  - POST PROCEDURAL COMPLICATION [None]
  - VENTRICULAR EXTRASYSTOLES [None]
